FAERS Safety Report 5268594-4 (Version None)
Quarter: 2007Q1

REPORT INFORMATION
  Report Type: 
  Country: None (occurrence: None)
  Receive Date: 20070315
  Receipt Date: 20070315
  Transmission Date: 20070707
  Serious: No
  Sender: FDA-Public Use
  Company Number: None

PATIENT
  Age: 77 Year
  Sex: Male
  Weight: 98.4306 kg

DRUGS (1)
  1. CLADRIBINE [Suspect]
     Indication: HAIRY CELL LEUKAEMIA
     Dosage: 8.8 MG/DAY IV IN 500 ML NS CONTINUOUS INFUSION X 7 DAYS
     Route: 042

REACTIONS (2)
  - EXTRAVASATION [None]
  - INJECTION SITE REACTION [None]
